FAERS Safety Report 4941112-3 (Version None)
Quarter: 2006Q1

REPORT INFORMATION
  Report Type: 
  Country: None (occurrence: None)
  Receive Date: 20060313
  Receipt Date: 20060220
  Transmission Date: 20060701
  Serious: Yes (Hospitalization)
  Sender: FDA-Public Use
  Company Number: US-GLAXOSMITHKLINE-A0594663A

PATIENT
  Sex: Male

DRUGS (5)
  1. LOTRONEX [Suspect]
     Indication: DRUG USE FOR UNKNOWN INDICATION
     Dosage: 1MG PER DAY
     Route: 048
     Dates: start: 20051001, end: 20051101
  2. PREMARIN [Concomitant]
  3. COMBIVIR [Concomitant]
  4. LEVITRA [Concomitant]
  5. LEXIVA [Concomitant]

REACTIONS (6)
  - FATIGUE [None]
  - HEADACHE [None]
  - HEPATIC INFECTION [None]
  - IRRITABILITY [None]
  - KIDNEY INFECTION [None]
  - PERSONALITY CHANGE [None]
